FAERS Safety Report 5951795-7 (Version None)
Quarter: 2008Q4

REPORT INFORMATION
  Report Type: 
  Country: None (occurrence: None)
  Receive Date: 20081113
  Receipt Date: 20081108
  Transmission Date: 20090506
  Serious: Yes (Life-Threatening, Hospitalization)
  Sender: FDA-Public Use
  Company Number: A0738211A

PATIENT
  Age: 88 Year
  Sex: Female
  Weight: 55.5 kg

DRUGS (5)
  1. VALTREX [Suspect]
     Indication: HERPES ZOSTER
     Dosage: 500MG PER DAY
     Route: 048
     Dates: start: 20080416, end: 20080418
  2. NORVASC [Concomitant]
     Indication: BLOOD PRESSURE ABNORMAL
     Dosage: 10MG PER DAY
     Route: 048
  3. ZESTRIL [Concomitant]
     Indication: BLOOD PRESSURE ABNORMAL
     Dosage: 10MG PER DAY
  4. METFORMIN HCL [Concomitant]
     Dosage: 500MG TWICE PER DAY
  5. ACTOS [Concomitant]
     Indication: DRUG USE FOR UNKNOWN INDICATION
     Dosage: 15MG PER DAY
     Route: 065

REACTIONS (7)
  - ANURIA [None]
  - BLOOD CREATININE INCREASED [None]
  - CONFUSIONAL STATE [None]
  - DYSURIA [None]
  - FATIGUE [None]
  - HYPONATRAEMIA [None]
  - RENAL FAILURE ACUTE [None]
